FAERS Safety Report 10724251 (Version 1)
Quarter: 2015Q1

REPORT INFORMATION
  Report Type: Spontaneous
  Country: US (occurrence: US)
  Receive Date: 20150120
  Receipt Date: 20150120
  Transmission Date: 20150721
  Serious: Yes (Other)
  Sender: FDA-Public Use
  Company Number: US-B.I. PHARMACEUTICALS,INC./RIDGEFIELD-2015-BI-02462BP

PATIENT
  Sex: Male
  Weight: 107.95 kg

DRUGS (4)
  1. MULTAQ [Concomitant]
     Active Substance: DRONEDARONE
     Indication: ARRHYTHMIA
     Dosage: FORMULATION: CAPLET
     Route: 048
     Dates: start: 2012
  2. PRADAXA [Suspect]
     Active Substance: DABIGATRAN ETEXILATE MESYLATE
     Indication: ATRIAL FIBRILLATION
     Dosage: 300 MG
     Route: 048
     Dates: start: 201408
  3. LISINOPRIL. [Concomitant]
     Active Substance: LISINOPRIL
     Indication: HYPERTENSION
     Dosage: 20 MG
     Route: 048
     Dates: start: 2012
  4. TEGRETOL [Concomitant]
     Active Substance: CARBAMAZEPINE
     Indication: SEIZURE
     Dosage: 800 MG
     Route: 048
     Dates: start: 2013

REACTIONS (2)
  - Atrial fibrillation [Recovered/Resolved]
  - Seizure [Unknown]
